FAERS Safety Report 23392487 (Version 1)
Quarter: 2024Q1

REPORT INFORMATION
  Report Type: Other
  Country: FR (occurrence: FR)
  Receive Date: 20240111
  Receipt Date: 20240111
  Transmission Date: 20240410
  Serious: Yes (Other)
  Sender: FDA-Public Use
  Company Number: None

PATIENT

DRUGS (6)
  1. CEFIDEROCOL SULFATE TOSYLATE [Suspect]
     Active Substance: CEFIDEROCOL SULFATE TOSYLATE
     Indication: Pneumonia acinetobacter
     Dosage: 2 G, 8 HOUR
     Route: 065
  2. AMPICILLIN\CLOXACILLIN [Suspect]
     Active Substance: AMPICILLIN\CLOXACILLIN
     Indication: Pneumonia acinetobacter
     Dosage: 9 G, 8 HOUR
     Route: 065
  3. COLISTIN [Suspect]
     Active Substance: COLISTIN
     Indication: Pneumonia acinetobacter
     Dosage: 3 10*6.[IU], 8 HOUR
     Route: 065
  4. XERAVA [Suspect]
     Active Substance: ERAVACYCLINE DIHYDROCHLORIDE
     Indication: Pneumonia acinetobacter
     Dosage: 100 MG, 1 DAY
     Route: 042
     Dates: start: 202311, end: 202311
  5. TIGECYCLINE [Concomitant]
     Active Substance: TIGECYCLINE
     Indication: Pneumonia acinetobacter
     Dosage: 200 MG
     Route: 065
  6. TIGECYCLINE [Concomitant]
     Active Substance: TIGECYCLINE
     Dosage: 200 MG, 1 DAY
     Route: 065

REACTIONS (2)
  - Renal impairment [Unknown]
  - Off label use [Unknown]

NARRATIVE: CASE EVENT DATE: 20231101
